FAERS Safety Report 4854754-0 (Version None)
Quarter: 2005Q4

REPORT INFORMATION
  Report Type: 
  Country: None (occurrence: None)
  Receive Date: 20051215
  Receipt Date: 20051205
  Transmission Date: 20060501
  Serious: Yes (Disabling)
  Sender: FDA-Public Use
  Company Number: JP-JPN-A20052967

PATIENT
  Age: 39 Year
  Sex: Male
  Weight: 76 kg

DRUGS (9)
  1. PAXIL [Suspect]
     Indication: DEPRESSION
     Dosage: 10MG PER DAY
     Route: 048
     Dates: start: 20040522, end: 20051129
  2. MICARDIS [Suspect]
     Indication: HYPERTENSION
     Dosage: 20MG PER DAY
     Route: 048
     Dates: start: 20040306
  3. ACTOS [Suspect]
     Indication: DIABETES MELLITUS
     Dosage: 15MG PER DAY
     Route: 048
     Dates: start: 20040903
  4. AMARYL [Suspect]
     Indication: DIABETES MELLITUS
     Dosage: 3MG TWICE PER DAY
     Route: 048
     Dates: start: 20040819
  5. RIZE [Suspect]
     Indication: ANXIETY DISORDER
     Dosage: 5MG TWICE PER DAY
     Route: 048
     Dates: start: 20040508
  6. DIOVAN [Concomitant]
     Dosage: 40MG PER DAY
     Route: 048
  7. VOGLIBOSE [Concomitant]
     Route: 048
  8. JUVELA N [Concomitant]
     Indication: PERIPHERAL CIRCULATORY FAILURE
     Dosage: 2TAB PER DAY
     Route: 048
     Dates: start: 20041211
  9. HACHIMI-JIO-GAN [Concomitant]
     Indication: DIABETES MELLITUS
     Dosage: 2U PER DAY
     Route: 048
     Dates: start: 20041211

REACTIONS (1)
  - DEPRESSED LEVEL OF CONSCIOUSNESS [None]
